FAERS Safety Report 6788089-6 (Version None)
Quarter: 2010Q2

REPORT INFORMATION
  Report Type: 
  Country: None (occurrence: None)
  Receive Date: 20100623
  Receipt Date: 20081202
  Transmission Date: 20101027
  Serious: Yes (Other)
  Sender: FDA-Public Use
  Company Number: US-PFIZER INC-2007076593

PATIENT
  Sex: Female
  Weight: 69 kg

DRUGS (3)
  1. MEDROXYPROGESTERONE ACETATE [Suspect]
     Indication: CONTRACEPTION
     Dosage: 1ST INJECTION, EVERY THREE MONTHS
     Route: 030
     Dates: start: 20070313, end: 20070313
  2. MEDROXYPROGESTERONE ACETATE [Suspect]
     Dosage: LAST INJECTION
     Route: 030
     Dates: start: 20070607, end: 20070607
  3. ORTHO-NOVUM 1/35 [Concomitant]
     Indication: CONTRACEPTION
     Route: 048
     Dates: end: 20070101

REACTIONS (2)
  - DRUG INEFFECTIVE [None]
  - UNINTENDED PREGNANCY [None]
